FAERS Safety Report 9579548 (Version 2)
Quarter: 2013Q4

REPORT INFORMATION
  Report Type: Spontaneous
  Country: US (occurrence: US)
  Receive Date: 20131001
  Receipt Date: 20131001
  Transmission Date: 20140711
  Serious: No
  Sender: FDA-Public Use
  Company Number: US-AMGEN-USASP2013014245

PATIENT
  Age: 55 Year
  Sex: Female

DRUGS (3)
  1. ENBREL [Suspect]
     Indication: RHEUMATOID ARTHRITIS
     Dosage: 50 MG, ONCE WEEKLY
     Route: 065
     Dates: start: 19981101
  2. METHOTREXATE [Concomitant]
     Dosage: 4 2.5 MG TABLETS ONCE WEEKLY
     Dates: start: 2006
  3. METHOTREXATE [Concomitant]
     Dosage: 2.5 MG, 5 TABLETS  WEEKLY
     Dates: start: 2010

REACTIONS (6)
  - Drug ineffective [Recovered/Resolved]
  - Arthralgia [Not Recovered/Not Resolved]
  - Rheumatoid arthritis [Not Recovered/Not Resolved]
  - Musculoskeletal stiffness [Not Recovered/Not Resolved]
  - Hepatic enzyme increased [Recovered/Resolved]
  - Local reaction [Unknown]
